FAERS Safety Report 6264517-X (Version None)
Quarter: 2009Q3

REPORT INFORMATION
  Report Type: 
  Country: None (occurrence: None)
  Receive Date: 20090708
  Receipt Date: 20090626
  Transmission Date: 20100115
  Serious: Yes (Disabling, Other)
  Sender: FDA-Public Use
  Company Number: OSCN-NO-0901S-0026

PATIENT
  Age: 59 Year
  Sex: Female

DRUGS (10)
  1. OMNISCAN [Suspect]
     Indication: DRUG USE FOR UNKNOWN INDICATION
     Dosage: 10 ML, SINGLE DOSE, I.V.
     Route: 042
     Dates: start: 20020115, end: 20020115
  2. GADOPENTETATE DIMEGLUMINE (MAGNEVIST) [Concomitant]
  3. GADOLINIUM [Concomitant]
  4. REMERON [Concomitant]
  5. METOCLOPRAMIDE [Concomitant]
  6. HALOPERIDOL [Concomitant]
  7. QUININE [Concomitant]
  8. LACTULOSE [Concomitant]
  9. MITRAZAPIN [Concomitant]
  10. HALOPERIDOL (SERENASE) [Concomitant]

REACTIONS (8)
  - ABDOMINAL PAIN [None]
  - AORTIC VALVE INCOMPETENCE [None]
  - AORTIC VALVE STENOSIS [None]
  - HAEMODIALYSIS [None]
  - MITRAL VALVE CALCIFICATION [None]
  - MITRAL VALVE INCOMPETENCE [None]
  - NEPHROGENIC SYSTEMIC FIBROSIS [None]
  - PULMONARY FUNCTION TEST ABNORMAL [None]
